FAERS Safety Report 22400767 (Version 1)
Quarter: 2023Q2

REPORT INFORMATION
  Report Type: Spontaneous
  Country: US (occurrence: None)
  Receive Date: 20230602
  Receipt Date: 20230602
  Transmission Date: 20230722
  Serious: No
  Sender: FDA-Public Use
  Company Number: US-Dermavant-000627

PATIENT

DRUGS (1)
  1. TAPINAROF [Suspect]
     Active Substance: TAPINAROF

REACTIONS (2)
  - Dry skin [Unknown]
  - Pruritus [Unknown]
